FAERS Safety Report 7276829-1 (Version None)
Quarter: 2011Q1

REPORT INFORMATION
  Report Type: 
  Country: None (occurrence: None)
  Receive Date: 20110207
  Receipt Date: 20110127
  Transmission Date: 20110831
  Serious: Yes (Hospitalization)
  Sender: FDA-Public Use
  Company Number: US-BIOGENIDEC-2011BI002898

PATIENT
  Age: 46 Year
  Sex: Female

DRUGS (2)
  1. TYSABRI [Suspect]
     Indication: MULTIPLE SCLEROSIS
     Route: 042
     Dates: start: 20060101, end: 20100101
  2. TYSABRI [Suspect]
     Route: 042
     Dates: start: 20100101, end: 20110101

REACTIONS (3)
  - ABSCESS LIMB [None]
  - STAPHYLOCOCCAL INFECTION [None]
  - CELLULITIS [None]
